FAERS Safety Report 4320951-6 (Version None)
Quarter: 2004Q1

REPORT INFORMATION
  Report Type: 
  Country: None (occurrence: None)
  Receive Date: 20040322
  Receipt Date: 20040316
  Transmission Date: 20041129
  Serious: Yes (Other)
  Sender: FDA-Public Use
  Company Number: US-BRISTOL-MYERS SQUIBB COMPANY-12534681

PATIENT
  Sex: Female

DRUGS (3)
  1. TEQUIN [Suspect]
     Indication: BRONCHIAL INFECTION
     Route: 048
     Dates: start: 20031101
  2. AQUATAB DM [Concomitant]
  3. MULTIVITAMIN [Concomitant]

REACTIONS (2)
  - HALLUCINATION [None]
  - SUICIDAL IDEATION [None]
